FAERS Safety Report 16022715 (Version 1)
Quarter: 2019Q1

REPORT INFORMATION
  Report Type: Spontaneous
  Country: US (occurrence: US)
  Receive Date: 20190202
  Receipt Date: 20190202
  Transmission Date: 20190418
  Serious: No
  Sender: FDA-Public Use
  Company Number: None

PATIENT
  Age: 60 Year
  Sex: Male

DRUGS (2)
  1. ALPRAZOLAM. [Concomitant]
     Active Substance: ALPRAZOLAM
  2. AUSTEDO [Suspect]
     Active Substance: DEUTETRABENAZINE
     Route: 048
     Dates: start: 20190124

REACTIONS (4)
  - Dysphagia [None]
  - Treatment failure [None]
  - Dyspnoea [None]
  - Eating disorder [None]

NARRATIVE: CASE EVENT DATE: 20190202
